FAERS Safety Report 10766925 (Version 1)
Quarter: 2015Q1

REPORT INFORMATION
  Report Type: Report from Study
  Country: GB (occurrence: GB)
  Receive Date: 20150205
  Receipt Date: 20150205
  Transmission Date: 20150721
  Serious: Yes (Hospitalization)
  Sender: FDA-Public Use
  Company Number: GB-ABBVIE-15K-167-1341571-00

PATIENT
  Age: 42 Year
  Sex: Female
  Weight: 128 kg

DRUGS (1)
  1. HUMIRA [Suspect]
     Active Substance: ADALIMUMAB
     Indication: RHEUMATOID ARTHRITIS
     Route: 058
     Dates: start: 20090820, end: 20130603

REACTIONS (4)
  - Umbilical hernia [Unknown]
  - Localised infection [Unknown]
  - Breast cellulitis [Unknown]
  - Miller Fisher syndrome [Unknown]

NARRATIVE: CASE EVENT DATE: 20130719
